FAERS Safety Report 10758005 (Version 1)
Quarter: 2015Q1

REPORT INFORMATION
  Report Type: Spontaneous
  Country: US (occurrence: None)
  Receive Date: 20150202
  Receipt Date: 20150202
  Transmission Date: 20150721
  Serious: Yes (Life-Threatening, Hospitalization, Disabling)
  Sender: FDA-Public Use
  Company Number: None

PATIENT
  Age: 47 Year
  Sex: Male
  Weight: 83.92 kg

DRUGS (2)
  1. HYDROCODONE ^5-325^ [Suspect]
     Active Substance: HYDROCODONE
     Indication: INTERVERTEBRAL DISC INJURY
     Dosage: FOUR EVERY SIX HOURS FOUR TIMES DAILY TAKEN BY MOUTH
     Route: 048
     Dates: start: 20110525, end: 20150106
  2. HYDROCODONE ^5-325^ [Suspect]
     Active Substance: HYDROCODONE
     Indication: BACK DISORDER
     Dosage: FOUR EVERY SIX HOURS FOUR TIMES DAILY TAKEN BY MOUTH
     Route: 048
     Dates: start: 20110525, end: 20150106

REACTIONS (4)
  - Pain [None]
  - Hypertension [None]
  - Palpitations [None]
  - Feeling abnormal [None]

NARRATIVE: CASE EVENT DATE: 20150129
